FAERS Safety Report 8834809 (Version 7)
Quarter: 2014Q2

REPORT INFORMATION
  Report Type: Spontaneous
  Country: US (occurrence: US)
  Receive Date: 20121010
  Receipt Date: 20140626
  Transmission Date: 20141212
  Serious: Yes (Hospitalization)
  Sender: FDA-Public Use
  Company Number: US-GLAXOSMITHKLINE-A0996745A

PATIENT
  Age: 66 Year
  Sex: Female

DRUGS (5)
  1. FLOLAN [Suspect]
     Indication: PULMONARY ARTERIAL HYPERTENSION
     Route: 042
     Dates: start: 20090321
  2. RADIATION TREATMENT [Suspect]
     Indication: THROAT CANCER
     Dates: end: 20120921
  3. CIPRO [Suspect]
     Indication: SINUSITIS
     Dosage: 500MG UNKNOWN
     Route: 065
  4. AVANDIA [Concomitant]
  5. ADCIRCA [Concomitant]

REACTIONS (23)
  - Deafness [Unknown]
  - Malaise [Unknown]
  - Decreased appetite [Unknown]
  - Oropharyngeal pain [Unknown]
  - Nausea [Unknown]
  - Incorrect dose administered [Unknown]
  - Dehydration [Unknown]
  - Fatigue [Unknown]
  - Dizziness [Not Recovered/Not Resolved]
  - Palpitations [Unknown]
  - Weight decreased [Unknown]
  - Feeling abnormal [Unknown]
  - Fall [Unknown]
  - Femur fracture [Unknown]
  - Limb injury [Unknown]
  - Localised infection [Not Recovered/Not Resolved]
  - Upper respiratory tract infection [Unknown]
  - Sinusitis [Not Recovered/Not Resolved]
  - Pharyngitis [Unknown]
  - Flatulence [Not Recovered/Not Resolved]
  - Abdominal distension [Not Recovered/Not Resolved]
  - Vomiting [Not Recovered/Not Resolved]
  - Urinary tract infection [Unknown]
